FAERS Safety Report 20358849 (Version 1)
Quarter: 2022Q1

REPORT INFORMATION
  Report Type: Spontaneous
  Country: US (occurrence: US)
  Receive Date: 20220120
  Receipt Date: 20220120
  Transmission Date: 20220423
  Serious: Yes (Hospitalization, Other)
  Sender: FDA-Public Use
  Company Number: US-VERTEX PHARMACEUTICALS-2022-000509

PATIENT
  Sex: Female

DRUGS (1)
  1. TRIKAFTA [Suspect]
     Active Substance: ELEXACAFTOR\IVACAFTOR\TEZACAFTOR
     Indication: Cystic fibrosis
     Dosage: UNK
     Route: 048

REACTIONS (8)
  - Abortion spontaneous [Unknown]
  - Dyspnoea [Unknown]
  - Gestational diabetes [Unknown]
  - Mood altered [Unknown]
  - Large for dates baby [Unknown]
  - Foetal growth restriction [Unknown]
  - Premature labour [Unknown]
  - Exposure during pregnancy [Unknown]
